FAERS Safety Report 7329552-9 (Version None)
Quarter: 2011Q1

REPORT INFORMATION
  Report Type: 
  Country: None (occurrence: None)
  Receive Date: 20110303
  Receipt Date: 20101227
  Transmission Date: 20110831
  Serious: No
  Sender: FDA-Public Use
  Company Number: US-BAYER-2011-019287

PATIENT
  Sex: Female
  Weight: 66 kg

DRUGS (2)
  1. ZIAC [Concomitant]
  2. ONE A DAY WOMEN'S ACTIVE METABOLISM [Suspect]
     Indication: VITAMIN SUPPLEMENTATION
     Dosage: UNK
     Route: 048
     Dates: start: 20100101

REACTIONS (2)
  - MALAISE [None]
  - NAUSEA [None]
